FAERS Safety Report 7612846-7 (Version None)
Quarter: 2011Q3

REPORT INFORMATION
  Report Type: 
  Country: None (occurrence: None)
  Receive Date: 20110708
  Receipt Date: 20110627
  Transmission Date: 20111222
  Serious: Yes (Other)
  Sender: FDA-Public Use
  Company Number: GER/UKI/09/0001331

PATIENT
  Sex: Female
  Weight: 2.23 kg

DRUGS (4)
  1. FLUOXETINE HYDROCHLORIDE [Suspect]
     Indication: PRODUCT USED FOR UNKNOWN INDICATION
     Dosage: 10 MG, TRANSPLACENTAL
     Route: 064
     Dates: start: 20051001
  2. ALBUTEROL [Suspect]
     Indication: PRODUCT USED FOR UNKNOWN INDICATION
     Dosage: TRANSPLACENTAL
     Route: 064
  3. BUDESONIDE [Suspect]
     Indication: PRODUCT USED FOR UNKNOWN INDICATION
     Dosage: 1 DOSAGE FORMS, 2 IN 1 D, TRANSPLACENTAL
     Route: 064
  4. FORMOTEROL FUMARATE [Suspect]
     Indication: PRODUCT USED FOR UNKNOWN INDICATION
     Dosage: 1 DOSAGE FORM 2 IN 1D
     Dates: start: 20051001

REACTIONS (2)
  - MATERNAL DRUGS AFFECTING FOETUS [None]
  - SEPSIS NEONATAL [None]
